FAERS Safety Report 9795300 (Version 2)
Quarter: 2014Q1

REPORT INFORMATION
  Report Type: Report from Study
  Country: DE (occurrence: DE)
  Receive Date: 20140103
  Receipt Date: 20140127
  Transmission Date: 20141002
  Serious: Yes (Other)
  Sender: FDA-Public Use
  Company Number: DE-BRISTOL-MYERS SQUIBB COMPANY-19958958

PATIENT
  Age: 70 Year
  Sex: Male
  Weight: 84 kg

DRUGS (3)
  1. CETUXIMAB [Suspect]
     Indication: NON-SMALL CELL LUNG CANCER
     Dosage: 400MG/M2: 08-08MAR11,15MAR11,MOST RECENT ADM DATE: 05JUL11(250MG/M2)
     Route: 042
     Dates: start: 20110308
  2. CARBOPLATIN [Suspect]
     Indication: NON-SMALL CELL LUNG CANCER
     Dosage: 1DF:5AUC,MOST RECENT ADM DATE: 05JUL11
  3. DOCETAXEL [Suspect]
     Indication: NON-SMALL CELL LUNG CANCER
     Dosage: 1DF:DLL, D8 AND D15 (35 MG/M2),MOST RECENT ADM DATE: 12JUL11
     Dates: start: 20110308

REACTIONS (1)
  - Bronchitis [Unknown]
